FAERS Safety Report 7560446-X (Version None)
Quarter: 2011Q2

REPORT INFORMATION
  Report Type: 
  Country: None (occurrence: None)
  Receive Date: 20110621
  Receipt Date: 20110606
  Transmission Date: 20111010
  Serious: Yes (Hospitalization)
  Sender: FDA-Public Use
  Company Number: NZ-WATSON-2011-08115

PATIENT
  Age: 69 Year
  Sex: Female
  Weight: 80 kg

DRUGS (2)
  1. LIDOCAINE 1% W/ EPINEPHRINE 1:200,000 [Suspect]
     Indication: NERVE BLOCK
     Dosage: 5 ML 1%
  2. BUPIVACAINE HCL [Suspect]
     Indication: NERVE BLOCK

REACTIONS (2)
  - GRAND MAL CONVULSION [None]
  - CIRCULATORY COLLAPSE [None]
